FAERS Safety Report 24429127 (Version 3)
Quarter: 2024Q4

REPORT INFORMATION
  Report Type: Spontaneous
  Country: US (occurrence: US)
  Receive Date: 20241011
  Receipt Date: 20241227
  Transmission Date: 20250114
  Serious: Yes (Hospitalization, Other)
  Sender: BAYER HEALTHCARE PHARMACEUTICALS INC.
  Company Number: US-BAYER-2024A139966

PATIENT
  Age: 13 Month
  Sex: Male

DRUGS (14)
  1. ADEMPAS [Suspect]
     Active Substance: RIOCIGUAT
     Indication: Pulmonary arterial hypertension
     Dosage: 0.5 MG, TID
     Route: 048
     Dates: start: 20240328
  2. BOSENTAN [Concomitant]
     Active Substance: BOSENTAN
  3. PULMICORT TURBUHALER [Concomitant]
     Active Substance: BUDESONIDE
  4. FAMOTIDINE [Concomitant]
     Active Substance: FAMOTIDINE
  5. IBUPROFEN [Concomitant]
     Active Substance: IBUPROFEN
  6. SYNTHROID [Concomitant]
     Active Substance: LEVOTHYROXINE SODIUM
  7. FUROSEMIDE [Concomitant]
     Active Substance: FUROSEMIDE
  8. ACETAMINOPHEN [Concomitant]
     Active Substance: ACETAMINOPHEN
  9. VITAMINS [Concomitant]
     Active Substance: VITAMINS
  10. FLONASE [Concomitant]
     Active Substance: FLUTICASONE PROPIONATE
  11. MONTELUKAST [Concomitant]
     Active Substance: MONTELUKAST SODIUM
  12. LANSOPRAZOLE [Concomitant]
     Active Substance: LANSOPRAZOLE
  13. FERROUS SULFATE [Concomitant]
     Active Substance: FERROUS SULFATE
  14. ALBUTEROL [Concomitant]
     Active Substance: ALBUTEROL

REACTIONS (5)
  - Hypoxia [Not Recovered/Not Resolved]
  - Pulmonary hypertension [None]
  - Pneumonia [None]
  - Acute respiratory failure [None]
  - Product use issue [None]

NARRATIVE: CASE EVENT DATE: 20240911
